FAERS Safety Report 15932574 (Version 3)
Quarter: 2019Q1

REPORT INFORMATION
  Report Type: Report from Study
  Country: CO (occurrence: CO)
  Receive Date: 20190207
  Receipt Date: 20190306
  Transmission Date: 20190417
  Serious: Yes (Hospitalization, Other)
  Sender: FDA-Public Use
  Company Number: CO-ACTELION-A-CH2018-184377

PATIENT
  Age: 77 Year
  Sex: Female
  Weight: 60 kg

DRUGS (4)
  1. RIOCIGUAT. [Concomitant]
     Active Substance: RIOCIGUAT
     Dosage: UNK
     Route: 048
  2. TRACLEER [Suspect]
     Active Substance: BOSENTAN
     Indication: PULMONARY ARTERIAL HYPERTENSION
     Dosage: 125 MG, BID
     Route: 048
     Dates: start: 201406, end: 201812
  3. TRACLEER [Suspect]
     Active Substance: BOSENTAN
     Dosage: 125 MG, BID
     Route: 048
     Dates: start: 20190215
  4. ILOPROST. [Concomitant]
     Active Substance: ILOPROST
     Dosage: UNK
     Route: 048

REACTIONS (9)
  - Fluid retention [Recovering/Resolving]
  - Product supply issue [Unknown]
  - Depressed mood [Recovering/Resolving]
  - Choking sensation [Recovering/Resolving]
  - Peripheral swelling [Recovering/Resolving]
  - Abdominal distension [Recovering/Resolving]
  - General physical health deterioration [Recovering/Resolving]
  - Paracentesis [Unknown]
  - Swelling face [Recovering/Resolving]

NARRATIVE: CASE EVENT DATE: 2014
